FAERS Safety Report 19997612 (Version 5)
Quarter: 2024Q3

REPORT INFORMATION
  Report Type: Spontaneous
  Country: GB (occurrence: GB)
  Receive Date: 20211026
  Receipt Date: 20240709
  Transmission Date: 20241016
  Serious: Yes (Life-Threatening, Hospitalization, Other)
  Sender: PFIZER
  Company Number: GB-GLOBAL BLOOD THERAPEUTICS INC-GB-GBT-21-03794

PATIENT
  Age: 23 Year
  Sex: Male
  Weight: 63 kg

DRUGS (6)
  1. OXBRYTA [Suspect]
     Active Substance: VOXELOTOR
     Indication: Sickle cell disease
     Dosage: 1500 MG, 1X/DAY
     Route: 048
     Dates: start: 20210920, end: 20211009
  2. OXBRYTA [Suspect]
     Active Substance: VOXELOTOR
     Dosage: 1000 MG, 1X/DAY
     Route: 048
     Dates: start: 20211010
  3. FOLIC ACID [Concomitant]
     Active Substance: FOLIC ACID
     Indication: Sickle cell disease
     Dosage: UNK
  4. HYDROXYUREA [Concomitant]
     Active Substance: HYDROXYUREA
     Indication: Sickle cell disease
     Dosage: 1 G, 1X/DAY
     Route: 048
  5. CHOLECALCIFEROL [Concomitant]
     Active Substance: CHOLECALCIFEROL
     Dosage: 20000 IU, WEEKLY
  6. OMEPRAZOLE [Concomitant]
     Active Substance: OMEPRAZOLE
     Indication: Stress ulcer
     Dosage: 20 MG, 1X/DAY

REACTIONS (5)
  - Sickle cell anaemia with crisis [Recovered/Resolved]
  - Abdominal pain [Unknown]
  - Haemoglobin decreased [Unknown]
  - Acute chest syndrome [Unknown]
  - Acute right ventricular failure [Unknown]

NARRATIVE: CASE EVENT DATE: 20211009
